FAERS Safety Report 24912785 (Version 2)
Quarter: 2025Q3

REPORT INFORMATION
  Report Type: Report from Study
  Country: US (occurrence: US)
  Receive Date: 20250131
  Receipt Date: 20250827
  Transmission Date: 20251021
  Serious: Yes (Other)
  Sender: ABBVIE
  Company Number: US-ABBVIE-6101124

PATIENT
  Age: 51 Year
  Sex: Female

DRUGS (2)
  1. HUMIRA [Suspect]
     Active Substance: ADALIMUMAB
     Indication: Rheumatoid arthritis
     Route: 058
     Dates: start: 20230303, end: 20240714
  2. HUMIRA [Suspect]
     Active Substance: ADALIMUMAB
     Route: 058
     Dates: start: 2024

REACTIONS (11)
  - Endovenous ablation [Unknown]
  - Inflammation [Recovered/Resolved]
  - COVID-19 [Unknown]
  - Arthralgia [Unknown]
  - Injection site pain [Recovered/Resolved]
  - Jaw disorder [Unknown]
  - Mastication disorder [Unknown]
  - Sciatica [Unknown]
  - Peripheral swelling [Unknown]
  - Insomnia [Unknown]
  - Pain in extremity [Unknown]

NARRATIVE: CASE EVENT DATE: 20240101
